FAERS Safety Report 11518008 (Version 1)
Quarter: 2015Q3

REPORT INFORMATION
  Report Type: Spontaneous
  Country: US (occurrence: US)
  Receive Date: 20150917
  Receipt Date: 20150917
  Transmission Date: 20151125
  Serious: No
  Sender: FDA-Public Use
  Company Number: US-CELGENEUS-USA-2015082813

PATIENT
  Age: 32 Year
  Sex: Female

DRUGS (1)
  1. OTEZLA [Suspect]
     Active Substance: APREMILAST
     Indication: PRODUCT USED FOR UNKNOWN INDICATION
     Dosage: 60 MILLIGRAM
     Route: 048
     Dates: start: 201507, end: 201507

REACTIONS (5)
  - Feeling of despair [Recovered/Resolved]
  - Psychiatric symptom [Recovered/Resolved]
  - Depressed mood [Recovered/Resolved]
  - Abdominal discomfort [Recovered/Resolved]
  - Migraine [Recovered/Resolved]

NARRATIVE: CASE EVENT DATE: 201507
